FAERS Safety Report 16136669 (Version 1)
Quarter: 2019Q1

REPORT INFORMATION
  Report Type: Spontaneous
  Country: US (occurrence: US)
  Receive Date: 20190329
  Receipt Date: 20190329
  Transmission Date: 20190418
  Serious: Yes (Hospitalization, Other)
  Sender: FDA-Public Use
  Company Number: PHEH2019US012800

PATIENT
  Age: 68 Year
  Sex: Female
  Weight: 108.5 kg

DRUGS (22)
  1. LIDOCAIN [Concomitant]
     Active Substance: LIDOCAINE
     Indication: PRODUCT USED FOR UNKNOWN INDICATION
     Dosage: UNK(APPLY TO PORT SITE 45 MINUTES PRIOR TO ACCESS)
     Route: 065
  2. ZYKADIA [Suspect]
     Active Substance: CERITINIB
     Indication: BREAST CANCER METASTATIC
     Dosage: 450 MG, QD
     Route: 048
     Dates: start: 20180912
  3. ZITHROMAX [Concomitant]
     Active Substance: AZITHROMYCIN DIHYDRATE
     Indication: PNEUMONIA
     Dosage: 500 MG, (TOTAL 3 DAY COURSE)
     Route: 048
  4. LOPERAMIDE [Concomitant]
     Active Substance: LOPERAMIDE
     Indication: PRODUCT USED FOR UNKNOWN INDICATION
     Dosage: 1 DF, PRN
     Route: 048
  5. PROCHLORPERAZINE. [Concomitant]
     Active Substance: PROCHLORPERAZINE
     Indication: NAUSEA
     Dosage: 1 DF, Q6H
     Route: 048
  6. ALBUTEROL. [Concomitant]
     Active Substance: ALBUTEROL
     Indication: PRODUCT USED FOR UNKNOWN INDICATION
     Dosage: UNK (INHALE 2 PUFFS INTO MOUTH/LUNGS EVERY 6 NEEDED FOR WHEEZING)
     Route: 065
  7. LORTAB [Concomitant]
     Active Substance: ACETAMINOPHEN\HYDROCODONE BITARTRATE
     Indication: PRODUCT USED FOR UNKNOWN INDICATION
     Dosage: 1 DF, Q6H
     Route: 048
  8. TRAMADOL. [Concomitant]
     Active Substance: TRAMADOL
     Indication: PAIN
     Dosage: UNK UNK, BID(TAKE 1-2 TABLETS BY MOUTH)
     Route: 048
  9. CEPHALEXIN. [Concomitant]
     Active Substance: CEPHALEXIN
     Indication: PRODUCT USED FOR UNKNOWN INDICATION
     Dosage: 2000 MG, UNK
     Route: 048
  10. LISINOPRIL. [Concomitant]
     Active Substance: LISINOPRIL
     Indication: PRODUCT USED FOR UNKNOWN INDICATION
     Dosage: 1 DF, QD
     Route: 048
  11. MAGNESIUM HYDROXIDE. [Concomitant]
     Active Substance: MAGNESIUM HYDROXIDE
     Indication: PRODUCT USED FOR UNKNOWN INDICATION
     Dosage: 1 DF, QD
     Route: 048
  12. ZYKADIA [Suspect]
     Active Substance: CERITINIB
     Dosage: 300 MG, QD(2*150 MG)
     Route: 048
     Dates: start: 20181004, end: 201901
  13. ZOMETA [Suspect]
     Active Substance: ZOLEDRONIC ACID
     Indication: BREAST CANCER METASTATIC
     Dosage: 4 MG, Q3MO (MOSTRECENTLY GIVEN ON 12 DEC 2018)
     Route: 042
  14. CEFUROXIME. [Concomitant]
     Active Substance: CEFUROXIME
     Indication: PNEUMONIA
     Dosage: 500 MG, BID(TOTAL 5 DAY COURSE)
  15. CALCITRATE [Concomitant]
     Active Substance: CALCIUM CITRATE
     Indication: PRODUCT USED FOR UNKNOWN INDICATION
     Dosage: 2 DF, QD
     Route: 048
  16. VITAMINE C [Concomitant]
     Active Substance: ASCORBIC ACID
     Indication: PRODUCT USED FOR UNKNOWN INDICATION
     Dosage: 1000 MG, QD
     Route: 048
  17. BUDESONIDE. [Concomitant]
     Active Substance: BUDESONIDE
     Indication: PRODUCT USED FOR UNKNOWN INDICATION
     Dosage: UNK UNK, BID(INHALE 2 PUFFS INTO MOUTH/LUNGS 2 TIMES DAILY)
     Route: 065
  18. CHOLECALCIFEROL [Concomitant]
     Active Substance: CHOLECALCIFEROL
     Indication: PRODUCT USED FOR UNKNOWN INDICATION
     Dosage: 1 DF, QD
     Route: 048
  19. ESCITALOPRAM [Concomitant]
     Active Substance: ESCITALOPRAM OXALATE
     Indication: PRODUCT USED FOR UNKNOWN INDICATION
     Dosage: 2 DF, QD
     Route: 048
  20. ZOFRAN [Concomitant]
     Active Substance: ONDANSETRON HYDROCHLORIDE
     Indication: NAUSEA
     Dosage: 1 DF, Q8H
     Route: 048
  21. DOXORUBICIN [Suspect]
     Active Substance: DOXORUBICIN
     Indication: BREAST CANCER METASTATIC
     Dosage: UNK UNK, Q3W
     Route: 042
     Dates: start: 20190129
  22. TIOTROPIUM BROMIDE [Concomitant]
     Active Substance: TIOTROPIUM BROMIDE
     Indication: PRODUCT USED FOR UNKNOWN INDICATION
     Dosage: UNK( TAKE 1 PUFF BY MOUTH DAILY)
     Route: 048

REACTIONS (17)
  - Metastases to lung [Unknown]
  - Malignant neoplasm progression [Unknown]
  - Malignant pleural effusion [Unknown]
  - Nausea [Unknown]
  - Feeling abnormal [Unknown]
  - Pulmonary mass [Recovering/Resolving]
  - Vomiting [Unknown]
  - Pneumonitis [Unknown]
  - Lung neoplasm malignant [Unknown]
  - Amylase increased [Unknown]
  - Breast cancer metastatic [Unknown]
  - Pancreatitis [Unknown]
  - Fatigue [Unknown]
  - Bone cancer [Unknown]
  - Musculoskeletal chest pain [Unknown]
  - Abdominal pain [Unknown]
  - Lipase increased [Unknown]

NARRATIVE: CASE EVENT DATE: 201809
